FAERS Safety Report 4715723-4 (Version None)
Quarter: 2005Q2

REPORT INFORMATION
  Report Type: 
  Country: None (occurrence: None)
  Receive Date: 20050630
  Receipt Date: 20050307
  Transmission Date: 20051028
  Serious: No
  Sender: FDA-Public Use
  Company Number: 212917

PATIENT
  Age: 59 Year
  Sex: Male
  Weight: 58 kg

DRUGS (9)
  1. AVASTIN [Suspect]
     Indication: COLON CANCER
     Dosage: 268 MG, Q2W, INTRAVENOUS
     Route: 042
     Dates: start: 20050228
  2. OXALIPLATIN (OXALIPLATIN) [Concomitant]
  3. 5FU (FLUOROURACIL) [Concomitant]
  4. LEUCOVORIN CALCIUM [Concomitant]
  5. TIAZAC [Concomitant]
  6. ZOCOR [Concomitant]
  7. PERCOCET [Concomitant]
  8. ASPIRIN [Concomitant]
  9. ENALAPRIL MALEATE [Concomitant]

REACTIONS (1)
  - NODULE [None]
